FAERS Safety Report 8749498 (Version 2)
Quarter: 2013Q2

REPORT INFORMATION
  Report Type: Spontaneous
  Country: US (occurrence: None)
  Receive Date: 20120808
  Receipt Date: 20130508
  Transmission Date: 20140414
  Serious: Yes (Hospitalization, Other)
  Sender: FDA-Public Use
  Company Number: ADR-2012-01425

PATIENT
  Sex: Male

DRUGS (3)
  1. BACLOFEN [Suspect]
  2. FENTANYL [Concomitant]
  3. BUPIVACAINE HYDROCHLORIDE [Concomitant]

REACTIONS (8)
  - DRUG WITHDRAWAL SYNDROME [None]
  - FALL [None]
  - HAEMATOCHEZIA [None]
  - NAUSEA [None]
  - VOMITING [None]
  - DIABETES MELLITUS INADEQUATE CONTROL [None]
  - HYPERTENSION [None]
  - PAIN [None]
